FAERS Safety Report 4890545-2 (Version None)
Quarter: 2006Q1

REPORT INFORMATION
  Report Type: 
  Country: None (occurrence: None)
  Receive Date: 20060123
  Receipt Date: 20060104
  Transmission Date: 20060701
  Serious: Yes (Disabling, Other)
  Sender: FDA-Public Use
  Company Number: US200601000685

PATIENT
  Age: 57 Year
  Sex: Female

DRUGS (6)
  1. HUMULIN R [Suspect]
     Dosage: AS NEEDED
     Dates: start: 19850101
  2. HUMULIN NPH VIAL [Suspect]
     Indication: DIABETES MELLITUS
     Dates: start: 19850101, end: 20050909
  3. ACTOS [Concomitant]
  4. AMARYL [Concomitant]
  5. LASIX [Concomitant]
  6. NORTRIPTYLINE HCL [Concomitant]

REACTIONS (5)
  - BLINDNESS [None]
  - DIABETIC NEUROPATHY [None]
  - DIABETIC RETINOPATHY [None]
  - IMPAIRED SELF-CARE [None]
  - MUSCULAR WEAKNESS [None]
